FAERS Safety Report 11084416 (Version 8)
Quarter: 2021Q1

REPORT INFORMATION
  Report Type: Spontaneous
  Country: PT (occurrence: PT)
  Receive Date: 20150502
  Receipt Date: 20210127
  Transmission Date: 20210419
  Serious: Yes (Hospitalization, Other)
  Sender: FDA-Public Use
  Company Number: PT-AUROBINDO-AUR-APL-2015-03877

PATIENT
  Age: 68 Year
  Sex: Female

DRUGS (23)
  1. ALPRAZOLAM 1MG [Interacting]
     Active Substance: ALPRAZOLAM
     Indication: PRODUCT USED FOR UNKNOWN INDICATION
     Dosage: 1 MILLIGRAM, DAILY
     Route: 048
  2. CELECOXIB. [Interacting]
     Active Substance: CELECOXIB
     Indication: PRODUCT USED FOR UNKNOWN INDICATION
     Dosage: 200 MILLIGRAM, ONCE A DAY
     Route: 048
  3. GLUCOSAMINE POWDER FOR ORAL SOLUTION [Interacting]
     Active Substance: GLUCOSAMINE
     Indication: PRODUCT USED FOR UNKNOWN INDICATION
     Dosage: 1500 MILLIGRAM, ONCE A DAY
     Route: 048
  4. SIMVASTATIN FILM?COATED TABLET [Interacting]
     Active Substance: SIMVASTATIN
     Indication: PRODUCT USED FOR UNKNOWN INDICATION
     Dosage: 40 MILLIGRAM, ONCE A DAY,TWO PACKAGES OF DIFFERENT
     Route: 048
  5. CLIDINIUM BROMIDE [Interacting]
     Active Substance: CLIDINIUM BROMIDE
     Indication: PRODUCT USED FOR UNKNOWN INDICATION
     Dosage: 2.5 MILLIGRAM, ONCE A DAY
     Route: 048
  6. PROPRANOLOL [Interacting]
     Active Substance: PROPRANOLOL HYDROCHLORIDE
     Indication: PRODUCT USED FOR UNKNOWN INDICATION
     Dosage: 40 MG, ONCE A DAY
     Route: 048
  7. ACECLOFENAC FILM COATED TABLETS [Suspect]
     Active Substance: ACECLOFENAC
     Indication: PRODUCT USED FOR UNKNOWN INDICATION
     Dosage: 100 MILLIGRAM, ONCE A DAY
     Route: 048
  8. DEFLAZACORTE [Interacting]
     Active Substance: DEFLAZACORT
     Indication: PRODUCT USED FOR UNKNOWN INDICATION
     Dosage: 3 MILLIGRAM, ONCE A DAY
     Route: 048
  9. OTILONIUM BROMIDE [Interacting]
     Active Substance: OTILONIUM BROMIDE
     Indication: PRODUCT USED FOR UNKNOWN INDICATION
     Dosage: 40 MILLIGRAM, ONCE A DAY
     Route: 048
  10. ACECLOFENAC FILM COATED TABLETS [Interacting]
     Active Substance: ACECLOFENAC
     Dosage: 40 MILLIGRAM, ONCE A DAY
     Route: 065
  11. BETAHISTINE TABLETS [Interacting]
     Active Substance: BETAHISTINE
     Indication: PRODUCT USED FOR UNKNOWN INDICATION
     Dosage: 16 MILLIGRAM, ONCE A DAY
     Route: 048
  12. CITICOLINE [Interacting]
     Active Substance: CITICOLINE
     Indication: PRODUCT USED FOR UNKNOWN INDICATION
     Dosage: 600 MILLIGRAM, ONCE A DAY
     Route: 048
  13. ARCOXIA [Interacting]
     Active Substance: ETORICOXIB
     Indication: PRODUCT USED FOR UNKNOWN INDICATION
     Dosage: 90 MILLIGRAM, ONCE A DAY
     Route: 048
  14. PAROXETINE FILM?COATED TABLET [Interacting]
     Active Substance: PAROXETINE
     Indication: PRODUCT USED FOR UNKNOWN INDICATION
     Dosage: 90 MILLIGRAM, DAILY
     Route: 065
  15. PARACETAMOL [Interacting]
     Active Substance: ACETAMINOPHEN
     Indication: PRODUCT USED FOR UNKNOWN INDICATION
     Dosage: UNK
     Route: 065
  16. TRAZODONE [Interacting]
     Active Substance: TRAZODONE HYDROCHLORIDE
     Indication: PRODUCT USED FOR UNKNOWN INDICATION
     Dosage: 150 MILLIGRAM, DAILY
     Route: 048
  17. TRIMETAZIDINE PROLONGED RELEASE TABLETS [Interacting]
     Active Substance: TRIMETAZIDINE
     Indication: PRODUCT USED FOR UNKNOWN INDICATION
     Dosage: 20 MILLIGRAM, ONCE A DAY
     Route: 048
  18. ALFUZOSIN PROLONGED RELEASE TABLETS [Interacting]
     Active Substance: ALFUZOSIN
     Indication: PRODUCT USED FOR UNKNOWN INDICATION
     Dosage: 5 MILLIGRAM, ONCE A DAY
     Route: 048
  19. ETORICOXIB FILM COATED TABLET [Interacting]
     Active Substance: ETORICOXIB
     Indication: PRODUCT USED FOR UNKNOWN INDICATION
     Dosage: 90 MILLIGRAM, ONCE A DAY
     Route: 065
  20. CHLORDIAZEPOXIDE. [Interacting]
     Active Substance: CHLORDIAZEPOXIDE
     Indication: PRODUCT USED FOR UNKNOWN INDICATION
     Dosage: 5 MILLIGRAM, DAILY
     Route: 065
  21. OMEPRAZOLE GASTRO?RESISTANT CAPSULE [Interacting]
     Active Substance: OMEPRAZOLE
     Indication: PRODUCT USED FOR UNKNOWN INDICATION
     Dosage: 20 MILLIGRAM, ONCE A DAY
     Route: 048
  22. TRIHEXYPHENIDYL [Interacting]
     Active Substance: TRIHEXYPHENIDYL
     Indication: PRODUCT USED FOR UNKNOWN INDICATION
     Dosage: 4 MILLIGRAM, DAILY
     Route: 048
  23. RISOLID [Interacting]
     Active Substance: CHLORDIAZEPOXIDE
     Indication: PRODUCT USED FOR UNKNOWN INDICATION
     Dosage: 5 MILLIGRAM, ONCE A DAY
     Route: 048

REACTIONS (17)
  - Ataxia [Recovered/Resolved]
  - Myoclonus [Recovered/Resolved]
  - Confusional state [Recovered/Resolved]
  - Gait disturbance [Recovered/Resolved]
  - Disorientation [Recovered/Resolved]
  - Loss of personal independence in daily activities [Recovered/Resolved]
  - Overdose [Recovered/Resolved]
  - Apraxia [Recovered/Resolved]
  - Hyperreflexia [Recovered/Resolved]
  - Memory impairment [Recovering/Resolving]
  - Disturbance in attention [Recovering/Resolving]
  - Drug interaction [Recovered/Resolved]
  - Bradyphrenia [Recovered/Resolved]
  - Perseveration [Recovered/Resolved]
  - Dementia [Recovered/Resolved]
  - Abnormal behaviour [Recovering/Resolving]
  - Cognitive disorder [Recovered/Resolved]
